FAERS Safety Report 11603065 (Version 2)
Quarter: 2016Q3

REPORT INFORMATION
  Report Type: Report from Study
  Country: US (occurrence: US)
  Receive Date: 20151006
  Receipt Date: 20160825
  Transmission Date: 20161109
  Serious: Yes (Other)
  Sender: FDA-Public Use
  Company Number: US-AMGEN-USASP2015083594

PATIENT
  Age: 59 Year
  Sex: Female

DRUGS (1)
  1. PROLIA [Suspect]
     Active Substance: DENOSUMAB
     Indication: OSTEOPOROSIS
     Dosage: UNK
     Route: 065
     Dates: start: 201506

REACTIONS (16)
  - Insomnia [Unknown]
  - Spinal fracture [Unknown]
  - Fibromyalgia [Unknown]
  - Back disorder [Unknown]
  - Asthenia [Unknown]
  - Gastrooesophageal reflux disease [Unknown]
  - Depression [Unknown]
  - Thyroid disorder [Unknown]
  - Obsessive-compulsive disorder [Unknown]
  - Activities of daily living impaired [Unknown]
  - Pain [Unknown]
  - Bone pain [Unknown]
  - Hypersensitivity [Unknown]
  - Dry throat [Unknown]
  - Pollakiuria [Unknown]
  - Feeling abnormal [Unknown]

NARRATIVE: CASE EVENT DATE: 2015
